FAERS Safety Report 13681904 (Version 1)
Quarter: 2017Q2

REPORT INFORMATION
  Report Type: Spontaneous
  Country: US (occurrence: US)
  Receive Date: 20170622
  Receipt Date: 20170622
  Transmission Date: 20170830
  Serious: Yes (Hospitalization)
  Sender: FDA-Public Use
  Company Number: None

PATIENT
  Age: 70 Year
  Sex: Male
  Weight: 90.22 kg

DRUGS (2)
  1. SULFAMETHIZOLE/TRIMETHOPRIM [Suspect]
     Active Substance: SULFAMETHOXAZOLE\TRIMETHOPRIM
     Indication: ARTHRITIS INFECTIVE
     Dosage: 800/160 MG
     Route: 048
     Dates: start: 20170303, end: 20170411
  2. SULFAMETHIZOLE/TRIMETHOPRIM [Suspect]
     Active Substance: SULFAMETHOXAZOLE\TRIMETHOPRIM
     Indication: STAPHYLOCOCCAL INFECTION
     Dosage: 800/160 MG
     Route: 048
     Dates: start: 20170303, end: 20170411

REACTIONS (4)
  - Drug hypersensitivity [None]
  - Rash pruritic [None]
  - Rash erythematous [None]
  - Urticaria [None]

NARRATIVE: CASE EVENT DATE: 20170411
